FAERS Safety Report 9822297 (Version 1)
Quarter: 2014Q1

REPORT INFORMATION
  Report Type: Spontaneous
  Country: NL (occurrence: NL)
  Receive Date: 20140116
  Receipt Date: 20140116
  Transmission Date: 20141002
  Serious: Yes (Hospitalization, Other)
  Sender: FDA-Public Use
  Company Number: NL-009507513-1401NLD005364

PATIENT
  Age: 47 Year
  Sex: Female

DRUGS (2)
  1. NUVARING [Suspect]
     Indication: CONTRACEPTION
     Dosage: 3 WEEKS USE, 1 WEEK NOT
     Route: 067
     Dates: start: 201206, end: 20130810
  2. ALEVE [Interacting]
     Indication: HEADACHE
     Dosage: 550 MG, QD
     Dates: start: 201308, end: 20130813

REACTIONS (4)
  - Epilepsy [Recovering/Resolving]
  - Venous thrombosis [Recovering/Resolving]
  - Headache [Recovering/Resolving]
  - Drug interaction [Recovering/Resolving]
